FAERS Safety Report 24991373 (Version 1)
Quarter: 2025Q1

REPORT INFORMATION
  Report Type: Report from Study
  Country: US (occurrence: US)
  Receive Date: 20250220
  Receipt Date: 20250220
  Transmission Date: 20250409
  Serious: Yes (Life-Threatening, Hospitalization)
  Sender: Pyros Pharmaceuticals
  Company Number: US-PYROS PHARMACEUTICALS, INC-2025-PYROS-US000057

PATIENT
  Age: 2 Year
  Sex: Female
  Weight: 13.605 kg

DRUGS (9)
  1. VIGAFYDE [Suspect]
     Active Substance: VIGABATRIN
     Indication: Infantile spasms
     Dosage: 750 MG (7.5 ML), BID
     Route: 048
     Dates: start: 20250118, end: 20250203
  2. VIGAFYDE [Suspect]
     Active Substance: VIGABATRIN
     Dosage: 1000 MG (10 ML), BID
     Route: 048
     Dates: start: 20250204, end: 20250204
  3. VIGAFYDE [Suspect]
     Active Substance: VIGABATRIN
     Dosage: 850 MG (8.5 ML), BID
     Route: 048
     Dates: start: 20250205, end: 20250207
  4. VIGAFYDE [Suspect]
     Active Substance: VIGABATRIN
     Dosage: 500 MG (5 ML), BID
     Route: 048
     Dates: start: 20250208, end: 20250210
  5. VIGAFYDE [Suspect]
     Active Substance: VIGABATRIN
     Dosage: 400 MG (4 ML), BID
     Route: 048
     Dates: start: 20250210
  6. KEPPRA [Concomitant]
     Active Substance: LEVETIRACETAM
     Indication: Product used for unknown indication
     Dosage: 400 MG, BID
     Route: 048
  7. GABAPENTIN [Concomitant]
     Active Substance: GABAPENTIN
     Indication: Product used for unknown indication
     Dosage: 50 MG, BID
     Route: 048
  8. OJEMDA [Concomitant]
     Active Substance: TOVORAFENIB
     Indication: Optic glioma
     Route: 048
     Dates: start: 20250206
  9. TYLENOL [Concomitant]
     Active Substance: ACETAMINOPHEN
     Indication: Pain
     Route: 048

REACTIONS (9)
  - Oxygen saturation decreased [Recovered/Resolved]
  - Tremor [Recovering/Resolving]
  - Muscle spasms [Recovering/Resolving]
  - Somnolence [Recovering/Resolving]
  - Sedation [Recovering/Resolving]
  - Heart rate increased [Unknown]
  - Mydriasis [Unknown]
  - Agitation [Not Recovered/Not Resolved]
  - Insomnia [Not Recovered/Not Resolved]

NARRATIVE: CASE EVENT DATE: 20250131
